FAERS Safety Report 4375325-9 (Version None)
Quarter: 2004Q2

REPORT INFORMATION
  Report Type: 
  Country: None (occurrence: None)
  Receive Date: 20040608
  Receipt Date: 20040524
  Transmission Date: 20050107
  Serious: Yes (Other)
  Sender: FDA-Public Use
  Company Number: 04-000339

PATIENT
  Sex: Male

DRUGS (1)
  1. PYRIDIUM (PHENAZOPYRIDINE HYDROCHLORIDE) TABLET, 100 MG [Suspect]

REACTIONS (2)
  - ACQUIRED METHAEMOGLOBINAEMIA [None]
  - MEDICATION ERROR [None]
